FAERS Safety Report 8834383 (Version 3)
Quarter: 2013Q2

REPORT INFORMATION
  Report Type: Spontaneous
  Country: IE (occurrence: IE)
  Receive Date: 20121010
  Receipt Date: 20130611
  Transmission Date: 20140414
  Serious: Yes (Other)
  Sender: FDA-Public Use
  Company Number: IE-US-EMD SERONO, INC.-7128832

PATIENT
  Sex: Female

DRUGS (1)
  1. REBIF [Suspect]
     Indication: RELAPSING-REMITTING MULTIPLE SCLEROSIS
     Route: 058
     Dates: start: 20050601

REACTIONS (4)
  - Gingival abscess [Recovering/Resolving]
  - Neuralgia [Recovering/Resolving]
  - Pain in jaw [Recovering/Resolving]
  - Tooth repair [Unknown]
